FAERS Safety Report 10554482 (Version 2)
Quarter: 2019Q3

REPORT INFORMATION
  Report Type: Spontaneous
  Country: US (occurrence: US)
  Receive Date: 20141030
  Receipt Date: 20190830
  Transmission Date: 20191004
  Serious: Yes (Other)
  Sender: FDA-Public Use
  Company Number: US-SA-2014SA145137

PATIENT
  Age: 68 Year
  Sex: Male

DRUGS (2)
  1. LANTUS SOLOSTAR [Suspect]
     Active Substance: INSULIN GLARGINE
     Indication: TYPE 2 DIABETES MELLITUS
     Dosage: 40 U, QD
     Route: 065
     Dates: start: 2012
  2. LANTUS SOLOSTAR [Suspect]
     Active Substance: INSULIN GLARGINE
     Dosage: 48 U, HS
     Route: 065

REACTIONS (2)
  - Wrong technique in device usage process [Unknown]
  - Renal transplant [Unknown]

NARRATIVE: CASE EVENT DATE: 2013
